FAERS Safety Report 9161208 (Version 12)
Quarter: 2014Q4

REPORT INFORMATION
  Report Type: Spontaneous
  Country: US (occurrence: US)
  Receive Date: 20130313
  Receipt Date: 20141208
  Transmission Date: 20150529
  Serious: Yes (Death, Hospitalization, Other)
  Sender: FDA-Public Use
  Company Number: US-GLAXOSMITHKLINE-A1015676A

PATIENT
  Sex: Female

DRUGS (12)
  1. FLOLAN [Suspect]
     Active Substance: EPOPROSTENOL SODIUM
     Dosage: UNK
     Dates: start: 20121102
  2. FLOLAN [Suspect]
     Active Substance: EPOPROSTENOL SODIUM
     Dosage: 38 NG/KG/MIN. CONTINUOUS, CONCENTRATION: 45,000 NG/ML, PUMP RATE: 81 ML/DAY, VIAL STRENGTH: 1.5 MG
     Route: 042
     Dates: start: 20121113
  3. TRACLEER [Concomitant]
     Active Substance: BOSENTAN\BOSENTAN MONOHYDRATE
  4. FLOLAN [Suspect]
     Active Substance: EPOPROSTENOL SODIUM
     Indication: PULMONARY HYPERTENSION
     Dosage: UNK
     Dates: start: 20121102
  5. REVATIO [Concomitant]
     Active Substance: SILDENAFIL CITRATE
  6. FLOLAN [Suspect]
     Active Substance: EPOPROSTENOL SODIUM
     Dosage: UNK
     Dates: start: 20121102
  7. FLOLAN [Suspect]
     Active Substance: EPOPROSTENOL SODIUM
     Dosage: UNK
     Dates: start: 20121102
  8. FLOLAN [Suspect]
     Active Substance: EPOPROSTENOL SODIUM
     Dosage: UNK
     Dates: start: 20121102
  9. FLOLAN [Suspect]
     Active Substance: EPOPROSTENOL SODIUM
     Indication: COR PULMONALE CHRONIC
     Dosage: CONTINUOUSDOSE: 34 NG/KG/MIN CONTINUOUSLYCONCENTRATION: 45,000 NG/MLVIAL STRENGTH: 1.5 MG AT PU[...]
     Route: 042
     Dates: start: 20121102
  10. FLOLAN [Suspect]
     Active Substance: EPOPROSTENOL SODIUM
     Dosage: UNK
     Dates: start: 20121102
  11. FLOLAN [Suspect]
     Active Substance: EPOPROSTENOL SODIUM
     Dosage: UNK
     Dates: start: 20121102
  12. FLOLAN [Suspect]
     Active Substance: EPOPROSTENOL SODIUM
     Dosage: UNK
     Dates: start: 20121102

REACTIONS (19)
  - Hypertension [Unknown]
  - Dyspnoea [Not Recovered/Not Resolved]
  - Vomiting [Unknown]
  - Death [Fatal]
  - Pericardial effusion [Recovered/Resolved]
  - Thyroid disorder [Unknown]
  - Hospitalisation [Unknown]
  - Nausea [Unknown]
  - Fatigue [Unknown]
  - Fluid retention [Unknown]
  - Gastritis bacterial [Unknown]
  - Gastric disorder [Unknown]
  - Haemoglobin decreased [Unknown]
  - Scleroderma [Unknown]
  - Device malfunction [Unknown]
  - Renal impairment [Unknown]
  - Lethargy [Unknown]
  - Diarrhoea [Unknown]
  - Tachycardia [Unknown]
